FAERS Safety Report 5742384-8 (Version None)
Quarter: 2008Q2

REPORT INFORMATION
  Report Type: 
  Country: None (occurrence: None)
  Receive Date: 20080515
  Receipt Date: 20080423
  Transmission Date: 20081010
  Serious: Yes (Hospitalization)
  Sender: FDA-Public Use
  Company Number: 080307230

PATIENT
  Age: 55 Year
  Sex: Female

DRUGS (3)
  1. MUCINEX [Suspect]
     Indication: INCREASED UPPER AIRWAY SECRETION
     Dosage: 1 TABL, BID, ORAL
     Route: 048
     Dates: start: 20080122, end: 20080123
  2. ASPIRIN [Concomitant]
  3. FLEXERIL [Concomitant]

REACTIONS (9)
  - AORTIC DILATATION [None]
  - ASTHENIA [None]
  - DIZZINESS [None]
  - ELECTROCARDIOGRAM POOR R-WAVE PROGRESSION [None]
  - HEART RATE DECREASED [None]
  - NERVOUSNESS [None]
  - ORAL INTAKE REDUCED [None]
  - SYNCOPE [None]
  - VOMITING [None]
